FAERS Safety Report 24312058 (Version 1)
Quarter: 2024Q3

REPORT INFORMATION
  Report Type: Spontaneous
  Country: PL (occurrence: PL)
  Receive Date: 20240912
  Receipt Date: 20240912
  Transmission Date: 20241017
  Serious: Yes (Hospitalization, Other)
  Sender: BRISTOL MYERS SQUIBB
  Company Number: PL-JNJFOC-20240827597

PATIENT
  Age: 75 Year
  Sex: Male
  Weight: 80 kg

DRUGS (3)
  1. LENALIDOMIDE [Suspect]
     Active Substance: LENALIDOMIDE
     Indication: Plasma cell myeloma
     Dosage: DATE OF MOST RECENT DOSE: 02-JUL-2024
     Route: 048
     Dates: start: 20190823, end: 20240702
  2. DARATUMUMAB [Suspect]
     Active Substance: DARATUMUMAB
     Indication: Plasma cell myeloma
     Dosage: DATE OF MOST RECENT DOSE: 02-JUL-2024
     Dates: start: 20190823
  3. DEXAMETHASONE [Suspect]
     Active Substance: DEXAMETHASONE
     Indication: Plasma cell myeloma
     Dosage: DATE OF MOST RECENT DOSE: 23-JUL-2024
     Dates: start: 20240723

REACTIONS (1)
  - Prostate cancer [Recovered/Resolved]

NARRATIVE: CASE EVENT DATE: 20240725
